FAERS Safety Report 7371893-3 (Version None)
Quarter: 2011Q1

REPORT INFORMATION
  Report Type: 
  Country: None (occurrence: None)
  Receive Date: 20110324
  Receipt Date: 20110317
  Transmission Date: 20110831
  Serious: Yes (Death)
  Sender: FDA-Public Use
  Company Number: US-ROCHE-766634

PATIENT
  Age: 27 Year
  Sex: Male

DRUGS (6)
  1. COCAINE [Suspect]
     Route: 048
  2. DIPHENHYDRAMINE/PARACETAMOL [Suspect]
     Dosage: DRUG: ACETAMINOPHEN/DIPHENHYDRAMINE
     Route: 048
  3. DIAZEPAM [Suspect]
     Route: 048
  4. DIAZEPAM [Suspect]
     Route: 048
  5. ALPRAZOLAM [Suspect]
     Route: 048
  6. DIAMORPHINE [Suspect]
     Dosage: DRUG: HEROIN
     Route: 048

REACTIONS (3)
  - TOXICITY TO VARIOUS AGENTS [None]
  - RESPIRATORY ARREST [None]
  - CARDIAC ARREST [None]
